FAERS Safety Report 6215034-4 (Version None)
Quarter: 2009Q2

REPORT INFORMATION
  Report Type: 
  Country: None (occurrence: None)
  Receive Date: 20090604
  Receipt Date: 20081114
  Transmission Date: 20091009
  Serious: No
  Sender: FDA-Public Use
  Company Number: US-ASTRAZENECA-2008UW25532

PATIENT
  Age: 74 Year
  Sex: Male

DRUGS (8)
  1. PRILOSEC [Suspect]
     Indication: EROSIVE OESOPHAGITIS
     Route: 048
     Dates: start: 20000101
  2. COENZYME Q10 [Concomitant]
  3. ASPIRIN [Concomitant]
  4. PREGNENOLONE DHEA [Concomitant]
  5. PRAVACHOL [Concomitant]
  6. ZETIA [Concomitant]
  7. PANTOTHENE [Concomitant]
  8. HIGH CONCENTRATED FISH OIL [Concomitant]

REACTIONS (2)
  - ARRHYTHMIA [None]
  - DRY MOUTH [None]
